FAERS Safety Report 8169375-4 (Version None)
Quarter: 2012Q1

REPORT INFORMATION
  Report Type: 
  Country: None (occurrence: None)
  Receive Date: 20120222
  Receipt Date: 20120207
  Transmission Date: 20120608
  Serious: Yes (Hospitalization)
  Sender: FDA-Public Use
  Company Number: 1000028264

PATIENT
  Age: 65 Year
  Sex: Female

DRUGS (2)
  1. EFFEXOR [Suspect]
  2. VIIBRYD [Suspect]
     Dosage: ORAL
     Route: 048

REACTIONS (1)
  - HYPERTENSION [None]
